FAERS Safety Report 10207106 (Version 1)
Quarter: 2014Q2

REPORT INFORMATION
  Report Type: Spontaneous
  Country: US (occurrence: None)
  Receive Date: 20140528
  Receipt Date: 20140528
  Transmission Date: 20141212
  Serious: Yes (Other)
  Sender: FDA-Public Use
  Company Number: None

PATIENT
  Age: 78 Year
  Sex: Female
  Weight: 39.46 kg

DRUGS (11)
  1. NAMENDA XR [Suspect]
     Indication: AMNESIA
     Dosage: 1 PILL
     Route: 048
     Dates: start: 20140416, end: 20140427
  2. AZITHROMYCIN [Concomitant]
  3. ZOLOFT [Concomitant]
  4. LIPITOR [Concomitant]
  5. PREDNIZONE [Concomitant]
  6. VERAPAMIL [Concomitant]
  7. SPIRIVA [Concomitant]
  8. SYMBICORT [Concomitant]
  9. VENTOLIN [Concomitant]
  10. NITROSTAT [Concomitant]
  11. NICORETTE GUM [Concomitant]

REACTIONS (3)
  - Hallucinations, mixed [None]
  - Muscle twitching [None]
  - Musculoskeletal stiffness [None]
